FAERS Safety Report 19669687 (Version 2)
Quarter: 2021Q3

REPORT INFORMATION
  Report Type: Spontaneous
  Country: JP (occurrence: JP)
  Receive Date: 20210806
  Receipt Date: 20210810
  Transmission Date: 20211014
  Serious: Yes (Death, Hospitalization, Other)
  Sender: FDA-Public Use
  Company Number: JP-ASTRAZENECA-2021A668324

PATIENT
  Age: 87 Year
  Sex: Male
  Weight: 50 kg

DRUGS (5)
  1. AMVALO [Concomitant]
     Active Substance: AMLODIPINE BESYLATE\VALSARTAN
     Route: 048
  2. GLIMEPIRIDE. [Concomitant]
     Active Substance: GLIMEPIRIDE
     Route: 048
  3. MAGMITT [Concomitant]
     Active Substance: MAGNESIUM OXIDE
     Dosage: 660 MG, NUMBER OF SEPARATE DOSAGES UNKNOWN
     Route: 048
  4. TAGRISSO [Suspect]
     Active Substance: OSIMERTINIB
     Indication: NON-SMALL CELL LUNG CANCER
     Route: 048
     Dates: start: 20210525, end: 20210623
  5. JANUVIA [Concomitant]
     Active Substance: SITAGLIPTIN PHOSPHATE
     Route: 048

REACTIONS (14)
  - Upper gastrointestinal haemorrhage [Recovered/Resolved]
  - Platelet count decreased [Unknown]
  - Lung disorder [Fatal]
  - Shock haemorrhagic [Unknown]
  - Atrial fibrillation [Unknown]
  - Blood pressure decreased [Unknown]
  - Urine output decreased [Unknown]
  - Arrhythmia [Unknown]
  - Dieulafoy^s vascular malformation [Unknown]
  - Multiple organ dysfunction syndrome [Fatal]
  - Oedema peripheral [Unknown]
  - Melaena [Recovered/Resolved]
  - Orthopnoea [Unknown]
  - Renal impairment [Unknown]

NARRATIVE: CASE EVENT DATE: 2021
